FAERS Safety Report 9651811 (Version 1)
Quarter: 2013Q4

REPORT INFORMATION
  Report Type: Spontaneous
  Country: US (occurrence: US)
  Receive Date: 20131029
  Receipt Date: 20131029
  Transmission Date: 20140711
  Serious: No
  Sender: FDA-Public Use
  Company Number: US-TEVA-440614USA

PATIENT
  Age: 30 Year
  Sex: Female
  Weight: 54.03 kg

DRUGS (2)
  1. PARAGARD 380A [Suspect]
     Indication: CONTRACEPTION
     Route: 015
     Dates: start: 20131015, end: 20131015
  2. KEPPRA [Concomitant]
     Indication: EPILEPSY
     Dosage: 1000 MILLIGRAM DAILY;
     Route: 048

REACTIONS (1)
  - Abdominal pain [Recovered/Resolved]
